FAERS Safety Report 24368730 (Version 1)
Quarter: 2024Q3

REPORT INFORMATION
  Report Type: Spontaneous
  Country: US (occurrence: US)
  Receive Date: 20240926
  Receipt Date: 20240926
  Transmission Date: 20241017
  Serious: No
  Sender: NOVARTIS
  Company Number: US-002147023-NVSC2024US191654

PATIENT
  Age: 7 Year
  Sex: Female

DRUGS (1)
  1. KYMRIAH [Suspect]
     Active Substance: TISAGENLECLEUCEL
     Indication: Non-Hodgkin^s lymphoma
     Dosage: 1 DOSAGE FORM, ONCE/SINGLE
     Route: 042
     Dates: start: 20240920, end: 20240920

REACTIONS (2)
  - COVID-19 [Recovering/Resolving]
  - Dehydration [Recovering/Resolving]
